FAERS Safety Report 4358579-4 (Version None)
Quarter: 2004Q2

REPORT INFORMATION
  Report Type: 
  Country: None (occurrence: None)
  Receive Date: 20040514
  Receipt Date: 20040401
  Transmission Date: 20050107
  Serious: No
  Sender: FDA-Public Use
  Company Number: A02200400231

PATIENT
  Age: 35 Year
  Sex: Female

DRUGS (4)
  1. PLAQUENIL [Suspect]
     Indication: SYSTEMIC LUPUS ERYTHEMATOSUS
     Dosage: 400 MG QD   ORAL
     Route: 048
     Dates: start: 19990101, end: 20040128
  2. TOLEXINE (DOXYCYCLINE) [Concomitant]
  3. IMPLANON (ETONOGESTREL) [Concomitant]
  4. ZYRTEC [Concomitant]

REACTIONS (2)
  - COLONOSCOPY ABNORMAL [None]
  - MELANOSIS COLI [None]
